FAERS Safety Report 21247493 (Version 2)
Quarter: 2022Q3

REPORT INFORMATION
  Report Type: Spontaneous
  Country: RU (occurrence: RU)
  Receive Date: 20220824
  Receipt Date: 20220921
  Transmission Date: 20221027
  Serious: Yes (Other)
  Sender: FDA-Public Use
  Company Number: RU-009507513-2208RUS008485

PATIENT
  Age: 71 Year
  Sex: Female

DRUGS (2)
  1. LAGEVRIO [Suspect]
     Active Substance: MOLNUPIRAVIR
     Indication: COVID-19 treatment
     Dosage: 1 TIME, 4 CAPSULES
     Route: 048
  2. ZOLOFT [Concomitant]
     Active Substance: SERTRALINE HYDROCHLORIDE
     Dosage: UNK
     Dates: start: 2020

REACTIONS (9)
  - Syncope [Unknown]
  - Abdominal pain upper [Unknown]
  - Asthenia [Recovering/Resolving]
  - Dysgeusia [Unknown]
  - Constipation [Unknown]
  - Dysphagia [Unknown]
  - Hand fracture [Unknown]
  - Fall [Unknown]
  - Nausea [Unknown]
